FAERS Safety Report 4422454-7 (Version None)
Quarter: 2004Q3

REPORT INFORMATION
  Report Type: 
  Country: None (occurrence: None)
  Receive Date: 20040806
  Receipt Date: 20040726
  Transmission Date: 20050211
  Serious: Yes (Hospitalization)
  Sender: FDA-Public Use
  Company Number: US-JNJFOC-20040707043

PATIENT
  Age: 73 Year
  Sex: Female

DRUGS (7)
  1. INFLIXIMAB (INFLIXIMAB, RECOMBINANT) LYOPHILIZED POWDER [Suspect]
     Indication: RHEUMATOID ARTHRITIS
     Dosage: INTRAVENOUS
     Route: 042
     Dates: start: 20010425
  2. COUMADIN [Concomitant]
  3. FOSAMAX [Concomitant]
  4. MULTIVITAMIN (MULTIVITAMINS) [Concomitant]
  5. SYNTHROID [Concomitant]
  6. TOPROL (METOPROLOL SUCCINATE) [Concomitant]
  7. TYLENOL [Concomitant]

REACTIONS (1)
  - MUSCLE SPASMS [None]
